FAERS Safety Report 8393038-3 (Version None)
Quarter: 2012Q2

REPORT INFORMATION
  Report Type: 
  Country: None (occurrence: None)
  Receive Date: 20120529
  Receipt Date: 20120326
  Transmission Date: 20120825
  Serious: No
  Sender: FDA-Public Use
  Company Number: US-ABBOTT-12P-163-0919075-00

PATIENT
  Sex: Male
  Weight: 77.18 kg

DRUGS (2)
  1. CIALIS [Concomitant]
     Indication: PRODUCT USED FOR UNKNOWN INDICATION
  2. ANDROGEL [Suspect]
     Indication: BLOOD TESTOSTERONE DECREASED

REACTIONS (3)
  - DRUG ADMINISTERED AT INAPPROPRIATE SITE [None]
  - BLOOD TESTOSTERONE DECREASED [None]
  - HEADACHE [None]
